FAERS Safety Report 25043043 (Version 2)
Quarter: 2025Q2

REPORT INFORMATION
  Report Type: Report from Study
  Country: US (occurrence: US)
  Receive Date: 20250305
  Receipt Date: 20250409
  Transmission Date: 20250717
  Serious: No
  Sender: MAYNE
  Company Number: US-MAYNE PHARMA-2025MYN000102

PATIENT

DRUGS (5)
  1. IMVEXXY [Suspect]
     Active Substance: ESTRADIOL
     Indication: Menopausal symptoms
     Route: 067
     Dates: start: 20240506
  2. IMVEXXY [Suspect]
     Active Substance: ESTRADIOL
     Route: 067
     Dates: start: 20250305
  3. PROGESTERONE [Concomitant]
     Active Substance: PROGESTERONE
     Indication: Product used for unknown indication
     Route: 065
  4. LEVOTHYROXINE [Concomitant]
     Active Substance: LEVOTHYROXINE
     Indication: Product used for unknown indication
     Route: 065
  5. ESTRADIOL [Concomitant]
     Active Substance: ESTRADIOL
     Indication: Product used for unknown indication
     Route: 065

REACTIONS (1)
  - Withdrawal bleed [Recovered/Resolved]
